FAERS Safety Report 20547351 (Version 1)
Quarter: 2022Q1

REPORT INFORMATION
  Report Type: Spontaneous
  Country: US (occurrence: None)
  Receive Date: 20220303
  Receipt Date: 20220303
  Transmission Date: 20220423
  Serious: No
  Sender: FDA-Public Use
  Company Number: None

PATIENT
  Age: 51 Year
  Sex: Female
  Weight: 90 kg

DRUGS (1)
  1. SPIRONOLACTONE [Suspect]
     Active Substance: SPIRONOLACTONE
     Indication: Hypertension
     Dosage: OTHER QUANTITY : 1 TABLET(S);?FREQUENCY : DAILY;?
     Route: 048
     Dates: start: 20211208, end: 20220111

REACTIONS (5)
  - Nausea [None]
  - Fatigue [None]
  - White blood cell count increased [None]
  - Blood creatinine increased [None]
  - Therapy interrupted [None]

NARRATIVE: CASE EVENT DATE: 20220111
